FAERS Safety Report 6443346-8 (Version None)
Quarter: 2009Q4

REPORT INFORMATION
  Report Type: 
  Country: None (occurrence: None)
  Receive Date: 20091117
  Receipt Date: 20091113
  Transmission Date: 20100525
  Serious: Yes (Hospitalization, Other)
  Sender: FDA-Public Use
  Company Number: US-MERCK-0908USA02150

PATIENT
  Age: 77 Year
  Sex: Female

DRUGS (3)
  1. FOSAMAX [Suspect]
     Indication: OSTEOPENIA
     Route: 048
     Dates: start: 19990901, end: 20020101
  2. FOSAMAX [Suspect]
     Route: 048
     Dates: start: 20050701
  3. FOSAMAX [Suspect]
     Route: 048
     Dates: start: 20020101, end: 20050101

REACTIONS (16)
  - ANKLE FRACTURE [None]
  - ARTHRALGIA [None]
  - BACK PAIN [None]
  - BALANCE DISORDER [None]
  - BONE CALLUS EXCESSIVE [None]
  - FEMUR FRACTURE [None]
  - GROIN PAIN [None]
  - HAEMATOCRIT DECREASED [None]
  - HAEMOGLOBIN DECREASED [None]
  - HIP DEFORMITY [None]
  - HIP FRACTURE [None]
  - HYPERTENSION [None]
  - LOW TURNOVER OSTEOPATHY [None]
  - MULTIPLE MYELOMA [None]
  - PAIN IN EXTREMITY [None]
  - TENDERNESS [None]
